FAERS Safety Report 6228076-X (Version None)
Quarter: 2009Q2

REPORT INFORMATION
  Report Type: 
  Country: None (occurrence: None)
  Receive Date: 20090612
  Receipt Date: 20090604
  Transmission Date: 20091009
  Serious: Yes (Death)
  Sender: FDA-Public Use
  Company Number: DE-WATSON-2009-04128

PATIENT
  Age: 67 Year
  Sex: Female

DRUGS (12)
  1. ETOPOSIDE [Suspect]
     Indication: NON-HODGKIN'S LYMPHOMA
     Dosage: UNK
  2. DEXAMETHASONE [Suspect]
     Indication: ANTIINFLAMMATORY THERAPY
  3. PREDNISOLONE (WATSON LABORATORIES) [Suspect]
     Indication: NON-HODGKIN'S LYMPHOMA
  4. RITUXIMAB [Suspect]
     Indication: NON-HODGKIN'S LYMPHOMA
  5. CYCLOPHOSPHAMIDE [Suspect]
     Indication: NON-HODGKIN'S LYMPHOMA
  6. DOXORUBICIN HCL [Suspect]
     Indication: NON-HODGKIN'S LYMPHOMA
  7. VINCRISTINE [Suspect]
     Indication: NON-HODGKIN'S LYMPHOMA
  8. CYTARABINE [Suspect]
     Indication: NON-HODGKIN'S LYMPHOMA
  9. CISPLATIN [Suspect]
     Indication: NON-HODGKIN'S LYMPHOMA
  10. CYTARABINE [Suspect]
     Indication: NON-HODGKIN'S LYMPHOMA
  11. MELPHALAN [Suspect]
     Indication: NON-HODGKIN'S LYMPHOMA
  12. METHOTREXATE [Suspect]
     Indication: NON-HODGKIN'S LYMPHOMA

REACTIONS (2)
  - GAS GANGRENE [None]
  - SEPTIC SHOCK [None]
